FAERS Safety Report 5989553-X (Version None)
Quarter: 2008Q4

REPORT INFORMATION
  Report Type: 
  Country: None (occurrence: None)
  Receive Date: 20081208
  Receipt Date: 20081125
  Transmission Date: 20090506
  Serious: Yes (Hospitalization)
  Sender: FDA-Public Use
  Company Number: 232289K08USA

PATIENT
  Age: 28 Year
  Sex: Female

DRUGS (7)
  1. REBIF [Suspect]
     Indication: MULTIPLE SCLEROSIS
     Dosage: 44 MCG, 3 IN 1 WEEKS, SUBCUTANEOUS
     Route: 058
     Dates: start: 20070517
  2. BACLOFEN [Suspect]
     Indication: MUSCLE SPASMS
     Dosage: 10 MG, 3 IN 1 DAYS, NOT REPORTED
  3. LYRICA [Suspect]
     Indication: FIBROMYALGIA
     Dosage: 75 MG, 3 IN 1 DAYS, NOT REPORTED; 150 MG, 1 IN 1 DAYS, NOT REPORTED
  4. CYMBALTA [Suspect]
     Dates: start: 20070101
  5. VICODIN [Concomitant]
  6. XANAX [Concomitant]
  7. ADDERALL (OBETROL /01345401/) [Concomitant]

REACTIONS (9)
  - AFFECT LABILITY [None]
  - CONDITION AGGRAVATED [None]
  - DRUG TOXICITY [None]
  - FEELING ABNORMAL [None]
  - HYPOPHAGIA [None]
  - INTENTIONAL DRUG MISUSE [None]
  - LOCALISED INFECTION [None]
  - MULTIPLE SCLEROSIS [None]
  - SKIN INFECTION [None]
